FAERS Safety Report 8801034 (Version 2)
Quarter: 2012Q4

REPORT INFORMATION
  Report Type: 
  Country: US (occurrence: US)
  Receive Date: 20120920
  Receipt Date: 20121026
  Transmission Date: 20130627
  Serious: Yes (Life-Threatening, Other)
  Sender: FDA-Public Use
  Company Number: US-ROCHE-1127598

PATIENT
  Sex: Female

DRUGS (3)
  1. AVASTIN [Suspect]
     Indication: BREAST CANCER FEMALE
     Route: 042
     Dates: start: 20061018, end: 20071127
  2. TAXOL [Concomitant]
     Route: 065
  3. GEMZAR [Concomitant]
     Route: 065

REACTIONS (4)
  - Metastases to soft tissue [Unknown]
  - Infection [Unknown]
  - No therapeutic response [Unknown]
  - Impaired healing [Unknown]
